FAERS Safety Report 17342336 (Version 1)
Quarter: 2020Q1

REPORT INFORMATION
  Report Type: Spontaneous
  Country: US (occurrence: US)
  Receive Date: 20200129
  Receipt Date: 20200129
  Transmission Date: 20200409
  Serious: No
  Sender: FDA-Public Use
  Company Number: US-ALLERGAN-1925354US

PATIENT
  Age: 53 Year
  Sex: Female

DRUGS (3)
  1. JUVEDERM [Concomitant]
     Active Substance: HYALURONIC ACID
     Dosage: 1 DF, SINGLE
     Dates: start: 20190601, end: 20190601
  2. BOTOX COSMETIC [Suspect]
     Active Substance: ONABOTULINUMTOXINA
     Indication: PRODUCT USED FOR UNKNOWN INDICATION
     Dosage: 18 UNITS, SINGLE
     Dates: start: 20190601, end: 20190601
  3. JUVEDERM ULTRA PLUS [Concomitant]
     Active Substance: HYALURONIC ACID\LIDOCAINE HYDROCHLORIDE
     Dosage: 1 DF, SINGLE
     Dates: start: 20190601, end: 20190601

REACTIONS (4)
  - Depression [Unknown]
  - Headache [Unknown]
  - Affect lability [Unknown]
  - Anxiety [Unknown]

NARRATIVE: CASE EVENT DATE: 20190604
